FAERS Safety Report 7956971-X (Version None)
Quarter: 2011Q4

REPORT INFORMATION
  Report Type: 
  Country: None (occurrence: None)
  Receive Date: 20111205
  Receipt Date: 20111129
  Transmission Date: 20120403
  Serious: Yes (Hospitalization)
  Sender: FDA-Public Use
  Company Number: DK-ROCHE-1014096

PATIENT
  Sex: Male
  Weight: 85 kg

DRUGS (9)
  1. IBUPROFEN [Concomitant]
     Indication: PAIN
     Route: 065
  2. PAMOL [Concomitant]
     Indication: PAIN
     Route: 065
  3. METHOTREXATE [Concomitant]
     Indication: RHEUMATOID ARTHRITIS
     Dosage: REPORTED AS METHOTREXAT SANDOZ
     Route: 065
     Dates: start: 20090507, end: 20111106
  4. TRAMADOL HCL [Concomitant]
     Indication: PAIN
     Route: 065
  5. PLAQUENIL [Concomitant]
     Indication: RHEUMATOID ARTHRITIS
     Route: 065
     Dates: start: 20090919
  6. FOLIMET [Concomitant]
     Indication: PROPHYLAXIS
     Dosage: ADVERSE DRUG REACTION METHOTREXATE PROPHYLACTIC
     Route: 065
     Dates: start: 20090507
  7. ACTEMRA [Suspect]
     Indication: RHEUMATOID ARTHRITIS
     Route: 065
     Dates: start: 20111007, end: 20111104
  8. LANSOPRAZOLE [Concomitant]
     Indication: PROPHYLAXIS
     Dosage: LANSOPRAZOL'ARROW'
     Route: 065
  9. UNIKALK [Concomitant]
     Route: 065

REACTIONS (4)
  - SEPTIC ARTHRITIS STAPHYLOCOCCAL [None]
  - ARTHRALGIA [None]
  - PYREXIA [None]
  - ARTHRITIS INFECTIVE [None]
